FAERS Safety Report 24109147 (Version 1)
Quarter: 2024Q3

REPORT INFORMATION
  Report Type: Spontaneous
  Country: US (occurrence: US)
  Receive Date: 20240718
  Receipt Date: 20240718
  Transmission Date: 20241016
  Serious: No
  Sender: ABBVIE
  Company Number: US-ABBVIE-5840731

PATIENT
  Age: 23 Year
  Sex: Female

DRUGS (1)
  1. LILETTA [Suspect]
     Active Substance: LEVONORGESTREL
     Indication: Product used for unknown indication
     Dosage: TIME INTERVAL: AS NECESSARY: 52 MG
     Route: 015
     Dates: start: 20221122

REACTIONS (2)
  - Unintentional medical device removal [Unknown]
  - Procedural pain [Unknown]

NARRATIVE: CASE EVENT DATE: 20240708
